FAERS Safety Report 9727785 (Version 3)
Quarter: 2013Q4

REPORT INFORMATION
  Report Type: Spontaneous
  Country: CN (occurrence: CN)
  Receive Date: 20131204
  Receipt Date: 20131218
  Transmission Date: 20140711
  Serious: Yes (Other)
  Sender: FDA-Public Use
  Company Number: CN-ROCHE-1313125

PATIENT
  Sex: 0

DRUGS (1)
  1. HERCEPTIN [Suspect]
     Indication: HER-2 POSITIVE BREAST CANCER
     Route: 065

REACTIONS (1)
  - Metastases to lung [Not Recovered/Not Resolved]
